FAERS Safety Report 13681826 (Version 6)
Quarter: 2017Q4

REPORT INFORMATION
  Report Type: Report from Study
  Country: CN (occurrence: CN)
  Receive Date: 20170623
  Receipt Date: 20171113
  Transmission Date: 20180320
  Serious: Yes (Hospitalization)
  Sender: FDA-Public Use
  Company Number: CN-ROCHE-1954213

PATIENT
  Age: 68 Year
  Sex: Male
  Weight: 76 kg

DRUGS (22)
  1. SPIRONOLACTONE. [Concomitant]
     Active Substance: SPIRONOLACTONE
     Indication: POLYURIA
     Route: 065
     Dates: start: 20170718, end: 20170723
  2. CELECOXIB. [Concomitant]
     Active Substance: CELECOXIB
     Indication: ARTHRALGIA
     Route: 048
     Dates: start: 20170208, end: 20170213
  3. GLUCOSE [Concomitant]
     Active Substance: DEXTROSE
     Route: 065
     Dates: start: 20170621, end: 20170621
  4. FUROSEMIDE. [Concomitant]
     Active Substance: FUROSEMIDE
     Indication: POLYURIA
     Route: 065
     Dates: start: 20170718, end: 20170722
  5. COMPOUND METHOXYPHENAMINE CAPSULE [Concomitant]
     Indication: PRODUCTIVE COUGH
  6. ACETYLCYSTEINE. [Concomitant]
     Active Substance: ACETYLCYSTEINE
     Indication: PRODUCTIVE COUGH
  7. TRIMETAZIDINE DIHYDROCHLORIDE [Concomitant]
     Active Substance: TRIMETAZIDINE DIHYDROCHLORIDE
     Dosage: ELEVATED CREATINE KINASE
     Route: 065
     Dates: start: 20170810
  8. POLYENE PHOSPHATIDYLCHOLINE [Concomitant]
     Active Substance: PHOSPHOLIPID
     Dosage: LIVER PROTECTION
     Route: 065
     Dates: start: 20170621, end: 20170621
  9. RECOMBINANT HUMAN INSULIN [Concomitant]
     Active Substance: INSULIN HUMAN
     Dosage: NUTRITIONAL MYOCARDIUM
     Route: 065
     Dates: start: 20170621, end: 20170621
  10. CREATINE PHOSPHATE SODIUM [Concomitant]
     Active Substance: CREATINE
     Dosage: TREATMENT OF ELEVATED CREATINE KINASE
     Route: 065
     Dates: start: 20170810, end: 20170813
  11. TRIMETAZIDINE DIHYDROCHLORIDE [Concomitant]
     Active Substance: TRIMETAZIDINE DIHYDROCHLORIDE
     Dosage: HEART PROTECTION
     Route: 065
     Dates: start: 20170718, end: 20170725
  12. GIK (GLUCOSE, INSULIN, POTASSIUM) [Concomitant]
     Route: 065
     Dates: start: 20170621
  13. POTASSIUM CHLORIDE. [Concomitant]
     Active Substance: POTASSIUM CHLORIDE
     Dosage: NUTRITIONAL MYOCARDIUM
     Route: 065
     Dates: start: 20170621, end: 20170621
  14. FRUCTOSE DIPHOSPHATE SODIUM [Concomitant]
     Dosage: HEART PROTECTION
     Route: 065
     Dates: start: 20170718, end: 20170725
  15. COMPOUND METHOXYPHENAMINE CAPSULE [Concomitant]
     Indication: COUGH
     Route: 065
     Dates: start: 20170120, end: 20170126
  16. ACETYLCYSTEINE. [Concomitant]
     Active Substance: ACETYLCYSTEINE
     Indication: COUGH
     Route: 048
     Dates: start: 20170120, end: 20170126
  17. CREATINE PHOSPHATE SODIUM [Concomitant]
     Active Substance: CREATINE
     Dosage: HEART PROTECTION
     Route: 065
     Dates: start: 20170622, end: 20170622
  18. FRUCTOSE DIPHOSPHATE SODIUM [Concomitant]
     Dosage: HEART PROTECTION
     Route: 065
     Dates: start: 20170626, end: 20170703
  19. TRIMETAZIDINE DIHYDROCHLORIDE [Concomitant]
     Active Substance: TRIMETAZIDINE DIHYDROCHLORIDE
     Indication: BLOOD CREATINE PHOSPHOKINASE INCREASED
     Dosage: HEART PROTECTION
     Route: 065
     Dates: start: 20170626, end: 20170703
  20. FUROSEMIDE. [Concomitant]
     Active Substance: FUROSEMIDE
     Indication: PERICARDIAL EFFUSION
     Route: 065
     Dates: start: 20170810
  21. ATEZOLIZUMAB. [Suspect]
     Active Substance: ATEZOLIZUMAB
     Indication: NON-SMALL CELL LUNG CANCER
     Dosage: -MOST RECENT DOSE 12/OCT/2017
     Route: 042
     Dates: start: 20160805
  22. SPIRONOLACTONE. [Concomitant]
     Active Substance: SPIRONOLACTONE
     Indication: PERICARDIAL EFFUSION
     Route: 065
     Dates: start: 20170810

REACTIONS (1)
  - Blood creatine phosphokinase increased [Recovered/Resolved]

NARRATIVE: CASE EVENT DATE: 20170119
